FAERS Safety Report 4552001-0 (Version None)
Quarter: 2005Q1

REPORT INFORMATION
  Report Type: 
  Country: None (occurrence: None)
  Receive Date: 20050112
  Receipt Date: 20041230
  Transmission Date: 20050727
  Serious: Yes (Other)
  Sender: FDA-Public Use
  Company Number: HQWYE211117JUL04

PATIENT
  Age: 32 Year
  Sex: Female
  Weight: 61.29 kg

DRUGS (1)
  1. PREMARIN [Suspect]
     Indication: HORMONE REPLACEMENT THERAPY
     Dosage: UNKNOWN, ORAL
     Route: 048
     Dates: start: 19800101, end: 20011001

REACTIONS (2)
  - BREAST CANCER FEMALE [None]
  - TRANSIENT ISCHAEMIC ATTACK [None]
